FAERS Safety Report 24055139 (Version 1)
Quarter: 2024Q3

REPORT INFORMATION
  Report Type: Spontaneous
  Country: US (occurrence: None)
  Receive Date: 20240703
  Receipt Date: 20240703
  Transmission Date: 20241016
  Serious: Yes (Disabling)
  Sender: Public
  Company Number: None

PATIENT
  Age: 60 Year
  Sex: Female
  Weight: 135 kg

DRUGS (11)
  1. AMLODIPINE BESYLATE [Suspect]
     Active Substance: AMLODIPINE BESYLATE
     Indication: Hypertension
     Dosage: OTHER QUANTITY : 1 TABLET(S);?FREQUENCY : DAILY;?
     Route: 048
     Dates: start: 20240621
  2. GLIMEPIRIDE [Concomitant]
     Active Substance: GLIMEPIRIDE
  3. Pepcid AM [Concomitant]
  4. PEPCID PM [Concomitant]
  5. DEVICE [Concomitant]
     Active Substance: DEVICE
  6. COD LIVER OIL [Concomitant]
     Active Substance: COD LIVER OIL
  7. Multivites [Concomitant]
  8. VITAMIN B12 [Concomitant]
     Active Substance: CYANOCOBALAMIN
  9. BERBERINE [Concomitant]
     Active Substance: BERBERINE
  10. VITAMIN C [Concomitant]
     Active Substance: ASCORBIC ACID
  11. Collagen gummies Type 1 + 3 [Concomitant]

REACTIONS (1)
  - Blood glucose increased [None]

NARRATIVE: CASE EVENT DATE: 20240702
